FAERS Safety Report 7252078-8 (Version None)
Quarter: 2011Q1

REPORT INFORMATION
  Report Type: 
  Country: None (occurrence: None)
  Receive Date: 20110128
  Receipt Date: 20100430
  Transmission Date: 20110831
  Serious: No
  Sender: FDA-Public Use
  Company Number: US-ABBOTT-10P-163-0641675-00

PATIENT
  Sex: Female

DRUGS (1)
  1. HUMIRA [Suspect]
     Indication: CROHN'S DISEASE
     Dosage: DAY 1
     Dates: start: 20100413

REACTIONS (6)
  - ARTHRALGIA [None]
  - PAIN [None]
  - OROPHARYNGEAL PAIN [None]
  - LYMPHADENOPATHY [None]
  - PYREXIA [None]
  - NIGHT SWEATS [None]
